FAERS Safety Report 8248656-X (Version None)
Quarter: 2012Q1

REPORT INFORMATION
  Report Type: 
  Country: None (occurrence: None)
  Receive Date: 20120331
  Receipt Date: 20120323
  Transmission Date: 20120608
  Serious: Yes (Hospitalization, Other)
  Sender: FDA-Public Use
  Company Number: US-AMGEN-USASP2012018980

PATIENT
  Sex: Female

DRUGS (2)
  1. ENBREL [Suspect]
     Indication: CONNECTIVE TISSUE DISORDER
     Dosage: UNK
     Dates: start: 20091118
  2. ENBREL [Suspect]
     Indication: SJOGREN'S SYNDROME

REACTIONS (2)
  - ARNOLD-CHIARI MALFORMATION [None]
  - INJECTION SITE PAIN [None]
